FAERS Safety Report 17544677 (Version 1)
Quarter: 2020Q1

REPORT INFORMATION
  Report Type: Spontaneous
  Country: IT (occurrence: IT)
  Receive Date: 20200316
  Receipt Date: 20200316
  Transmission Date: 20200409
  Serious: Yes (Other)
  Sender: FDA-Public Use
  Company Number: IT-ACCORD-175725

PATIENT
  Age: 73 Year
  Sex: Male

DRUGS (4)
  1. LOBIVON [Concomitant]
     Active Substance: NEBIVOLOL HYDROCHLORIDE
     Indication: HYPERTENSION
  2. AVASTIN [Suspect]
     Active Substance: BEVACIZUMAB
     Indication: COLORECTAL CANCER METASTATIC
     Dosage: STRENGTH 25 MG/ML, LAST DOSE ADMINISTERED: 18-FEB-2020
     Route: 042
     Dates: start: 20180427
  3. FLUOROURACIL. [Suspect]
     Active Substance: FLUOROURACIL
     Indication: COLORECTAL CANCER METASTATIC
     Dosage: LAST DOSE ADMINISTERED: 18-FEB-2020
     Route: 042
     Dates: start: 20180427
  4. FLUOROURACIL. [Suspect]
     Active Substance: FLUOROURACIL
     Indication: COLORECTAL CANCER METASTATIC
     Dosage: LAST DOSE ADMINISTERED: 18-FEB-2020
     Route: 040
     Dates: start: 20180427

REACTIONS (2)
  - Hypertension [Unknown]
  - Palmar-plantar erythrodysaesthesia syndrome [Unknown]

NARRATIVE: CASE EVENT DATE: 20200303
